FAERS Safety Report 25291678 (Version 1)
Quarter: 2025Q2

REPORT INFORMATION
  Report Type: Spontaneous
  Country: US (occurrence: US)
  Receive Date: 20250510
  Receipt Date: 20250510
  Transmission Date: 20250717
  Serious: No
  Sender: SANOFI AVENTIS
  Company Number: US-SA-2025SA123683

PATIENT
  Age: 66 Year
  Sex: Male
  Weight: 86.59 kg

DRUGS (1)
  1. KEVZARA [Suspect]
     Active Substance: SARILUMAB
     Indication: Polymyalgia rheumatica
     Dosage: 200 MG QOW
     Route: 058
     Dates: start: 20250305, end: 202504

REACTIONS (3)
  - Fatigue [Unknown]
  - Depression [Unknown]
  - Daydreaming [Unknown]

NARRATIVE: CASE EVENT DATE: 20250101
